FAERS Safety Report 24979204 (Version 2)
Quarter: 2025Q1

REPORT INFORMATION
  Report Type: Spontaneous
  Country: JP (occurrence: JP)
  Receive Date: 20250218
  Receipt Date: 20250225
  Transmission Date: 20250409
  Serious: Yes (Other)
  Sender: TEVA
  Company Number: JP-TEVA-VS-3238756

PATIENT
  Age: 70 Year
  Sex: Male

DRUGS (3)
  1. DUTASTERIDE [Suspect]
     Active Substance: DUTASTERIDE
     Indication: Benign prostatic hyperplasia
     Route: 048
     Dates: start: 2024
  2. MOVICOL [Concomitant]
     Active Substance: POLYETHYLENE GLYCOL 3350\POTASSIUM CHLORIDE\SODIUM BICARBONATE\SODIUM CHLORIDE
     Indication: Product used for unknown indication
     Route: 048
  3. SESAMIN [Concomitant]
     Indication: Product used for unknown indication
     Route: 048

REACTIONS (10)
  - Chronic kidney disease [Not Recovered/Not Resolved]
  - Constipation [Not Recovered/Not Resolved]
  - Hair growth abnormal [Not Recovered/Not Resolved]
  - Nasal mucosal disorder [Not Recovered/Not Resolved]
  - Abdominal discomfort [Not Recovered/Not Resolved]
  - Product use issue [Unknown]
  - Rhinalgia [Not Recovered/Not Resolved]
  - Product size issue [Unknown]
  - Dysphagia [Unknown]
  - Blood creatinine abnormal [Unknown]

NARRATIVE: CASE EVENT DATE: 20240101
